FAERS Safety Report 23732768 (Version 5)
Quarter: 2024Q2

REPORT INFORMATION
  Report Type: Spontaneous
  Country: FR (occurrence: None)
  Receive Date: 20240411
  Receipt Date: 20240510
  Transmission Date: 20240715
  Serious: Yes (Death, Life-Threatening, Hospitalization, Other)
  Sender: FDA-Public Use
  Company Number: 2024A086761

PATIENT
  Age: 34 Year
  Sex: Male
  Weight: 79 kg

DRUGS (36)
  1. QUETIAPINE [Suspect]
     Active Substance: QUETIAPINE
     Dosage: 1 TABLET AT NIGHT FOR ONE MONTH
  2. SKENAN [Interacting]
     Active Substance: MORPHINE SULFATE
     Dates: start: 201608, end: 20160908
  3. VALIUM [Interacting]
     Active Substance: DIAZEPAM
  4. CODEINE [Suspect]
     Active Substance: CODEINE
  5. ACETAMINOPHEN [Suspect]
     Active Substance: ACETAMINOPHEN
     Indication: Back pain
     Dates: start: 2016, end: 2016
  6. FENTANYL [Interacting]
     Active Substance: FENTANYL\FENTANYL CITRATE
     Dosage: 12 MICROGRAMS PER INHALATION
  7. CLOTIAZEPAM [Interacting]
     Active Substance: CLOTIAZEPAM
     Dosage: 3 TABLETS PER DAY FOR A MONTH
  8. AMISULPRIDE [Suspect]
     Active Substance: AMISULPRIDE
     Indication: Schizophrenia
  9. AMISULPRIDE [Suspect]
     Active Substance: AMISULPRIDE
     Indication: Bipolar disorder
  10. MIANSERIN HYDROCHLORIDE [Suspect]
     Active Substance: MIANSERIN HYDROCHLORIDE
     Indication: Depression
     Dates: start: 2016, end: 2016
  11. MIANSERIN HYDROCHLORIDE [Suspect]
     Active Substance: MIANSERIN HYDROCHLORIDE
     Indication: Back pain
     Dates: start: 2016, end: 2016
  12. TRAMADOL [Suspect]
     Active Substance: TRAMADOL\TRAMADOL HYDROCHLORIDE
     Indication: Back pain
     Dates: start: 2016, end: 2016
  13. COCAINE [Suspect]
     Active Substance: COCAINE
  14. PRAZEPAM [Interacting]
     Active Substance: PRAZEPAM
  15. OXYCONTIN [Interacting]
     Active Substance: OXYCODONE HYDROCHLORIDE
  16. CODEINE PHOSPHATE\IBUPROFEN [Suspect]
     Active Substance: CODEINE PHOSPHATE\IBUPROFEN
     Dosage: 1 DOSAGE FORM IN 0.3 DAY
     Dates: start: 2016, end: 2016
  17. ARTANE [Suspect]
     Active Substance: TRIHEXYPHENIDYL HYDROCHLORIDE
     Indication: Product used for unknown indication
     Dosage: 5.0MG UNKNOWN
     Dates: start: 201609, end: 20160908
  18. THIOCOLCHICOSIDE [Suspect]
     Active Substance: THIOCOLCHICOSIDE
     Indication: Product used for unknown indication
     Dosage: 4.0MG UNKNOWN
  19. PAROXETINE MESYLATE [Suspect]
     Active Substance: PAROXETINE MESYLATE
     Indication: Back pain
     Dates: start: 201608, end: 20160908
  20. IBUPROFEN [Suspect]
     Active Substance: IBUPROFEN
     Indication: Back pain
     Route: 048
     Dates: start: 2016, end: 2016
  21. KETAMINE [Suspect]
     Active Substance: KETAMINE
     Indication: Back pain
     Dates: start: 2016, end: 2016
  22. PAROXETINE HYDROCHLORIDE [Suspect]
     Active Substance: PAROXETINE HYDROCHLORIDE\PAROXETINE HYDROCHLORIDE ANHYDROUS
     Indication: Back pain
     Dates: start: 201608, end: 20160908
  23. ETIFOXINE [Suspect]
     Active Substance: ETIFOXINE
  24. CLOBAZAM [Suspect]
     Active Substance: CLOBAZAM
     Indication: Product used for unknown indication
     Dates: start: 201608, end: 20160908
  25. OXAZEPAM [Suspect]
     Active Substance: OXAZEPAM
     Indication: Depression
     Route: 048
  26. OXAZEPAM [Suspect]
     Active Substance: OXAZEPAM
     Indication: Bipolar disorder
     Route: 048
  27. MEPHENESIN [Suspect]
     Active Substance: MEPHENESIN
  28. NAFRONYL [Suspect]
     Active Substance: NAFRONYL
  29. TEMAZEPAM [Suspect]
     Active Substance: TEMAZEPAM
  30. CLONAZEPAM [Interacting]
     Active Substance: CLONAZEPAM
  31. TRAMADOL HYDROCHLORIDE [Interacting]
     Active Substance: TRAMADOL HYDROCHLORIDE
  32. PAROXETINE [Interacting]
     Active Substance: PAROXETINE
  33. NORDAZEPAM [Interacting]
     Active Substance: NORDAZEPAM
  34. OXAZEPAM [Interacting]
     Active Substance: OXAZEPAM
  35. ALPRAZOLAM [Interacting]
     Active Substance: ALPRAZOLAM
  36. ZOPICLONE [Interacting]
     Active Substance: ZOPICLONE

REACTIONS (42)
  - Hepatic cytolysis [Fatal]
  - Hyperglycaemia [Fatal]
  - Cardiomyopathy [Fatal]
  - Stenosis [Fatal]
  - Gallbladder injury [Fatal]
  - Coma [Fatal]
  - Cardio-respiratory arrest [Fatal]
  - Myocarditis [Fatal]
  - Labelled drug-drug interaction issue [Fatal]
  - Encephalopathy [Fatal]
  - Accidental poisoning [Fatal]
  - Hepatitis acute [Fatal]
  - Respiratory depression [Fatal]
  - Myocardial infarction [Unknown]
  - Synovitis [Unknown]
  - Acute pulmonary oedema [Fatal]
  - Hypotension [Unknown]
  - Arrhythmia [Unknown]
  - Aspiration [Fatal]
  - Overdose [Fatal]
  - Pancreas infection [Fatal]
  - Cardiac disorder [Unknown]
  - Coronary artery stenosis [Fatal]
  - Hepatic enzyme increased [Fatal]
  - White blood cell count increased [Fatal]
  - Product prescribing issue [Unknown]
  - Jaundice [Fatal]
  - Drug screen false positive [Fatal]
  - Toxicity to various agents [Fatal]
  - Cholecystitis infective [Fatal]
  - Monocytosis [Unknown]
  - Leukocytosis [Unknown]
  - Inflammation [Unknown]
  - Somnolence [Unknown]
  - Asteatosis [Unknown]
  - Logorrhoea [Unknown]
  - Aggression [Unknown]
  - Panic attack [Unknown]
  - Cardiac disorder [Unknown]
  - Thirst [Unknown]
  - Hypersomnia [Unknown]
  - Confusional state [Unknown]

NARRATIVE: CASE EVENT DATE: 20160101
